FAERS Safety Report 7660120-5 (Version None)
Quarter: 2011Q3

REPORT INFORMATION
  Report Type: 
  Country: None (occurrence: None)
  Receive Date: 20110802
  Receipt Date: 20110527
  Transmission Date: 20111222
  Serious: Yes (Other)
  Sender: FDA-Public Use
  Company Number: B0735940A

PATIENT
  Age: 33 Year
  Sex: Female

DRUGS (1)
  1. PSEUDOEPHEDRINE HCL [Suspect]
     Indication: UPPER RESPIRATORY TRACT INFECTION

REACTIONS (8)
  - VISION BLURRED [None]
  - PARAESTHESIA [None]
  - PARAESTHESIA ORAL [None]
  - MUSCULAR WEAKNESS [None]
  - SUBARACHNOID HAEMORRHAGE [None]
  - APHASIA [None]
  - PHOTOPHOBIA [None]
  - CEREBRAL VASOCONSTRICTION [None]
